FAERS Safety Report 9351312 (Version 1)
Quarter: 2013Q2

REPORT INFORMATION
  Report Type: Spontaneous
  Country: GB (occurrence: GB)
  Receive Date: 20130617
  Receipt Date: 20130617
  Transmission Date: 20140414
  Serious: Yes (Disabling)
  Sender: FDA-Public Use
  Company Number: PHHY2013GB059193

PATIENT
  Age: 70 Year
  Sex: Female

DRUGS (4)
  1. IRBESARTAN [Suspect]
     Indication: HYPERTENSION
     Dosage: 300 MG, QD
     Route: 048
  2. BENDROFLUMETHIAZIDE [Concomitant]
  3. OMEPRAZOLE [Concomitant]
  4. DOXYCYCLINE [Concomitant]

REACTIONS (2)
  - Activities of daily living impaired [Unknown]
  - Musculoskeletal pain [Recovered/Resolved]
